FAERS Safety Report 24108782 (Version 1)
Quarter: 2024Q3

REPORT INFORMATION
  Report Type: Spontaneous
  Country: US (occurrence: US)
  Receive Date: 20240718
  Receipt Date: 20240718
  Transmission Date: 20241016
  Serious: Yes (Hospitalization, Other)
  Sender: RANBAXY
  Company Number: US-SUN PHARMACEUTICAL INDUSTRIES LTD-2024R1-457109

PATIENT
  Age: 66 Year

DRUGS (5)
  1. METHOTREXATE [Suspect]
     Active Substance: METHOTREXATE
     Indication: Gestational trophoblastic tumour
     Dosage: DAY 8, EVERY 2 WEEKS
     Route: 065
  2. CISPLATIN [Suspect]
     Active Substance: CISPLATIN
     Indication: Gestational trophoblastic tumour
     Dosage: DAY 1
     Route: 065
  3. ACTINOMYCIN D [Suspect]
     Active Substance: DACTINOMYCIN
     Indication: Gestational trophoblastic tumour
     Dosage: DAY 8, EVERY 2 WEEKS
     Route: 065
  4. ETOPOSIDE [Suspect]
     Active Substance: ETOPOSIDE
     Indication: Gestational trophoblastic tumour
     Dosage: DAY 1
     Route: 065
  5. ETOPOSIDE [Suspect]
     Active Substance: ETOPOSIDE
     Dosage: DAY 8, EVERY 2 WEEKS
     Route: 065

REACTIONS (7)
  - Anaemia [Unknown]
  - Febrile neutropenia [Unknown]
  - Hypophagia [Unknown]
  - Mucosal inflammation [Unknown]
  - Neutropenia [Unknown]
  - Sepsis [Unknown]
  - Thrombocytopenia [Unknown]
